FAERS Safety Report 9171323 (Version 2)
Quarter: 2013Q2

REPORT INFORMATION
  Report Type: Spontaneous
  Country: DE (occurrence: DE)
  Receive Date: 20130319
  Receipt Date: 20130604
  Transmission Date: 20140414
  Serious: Yes (Life-Threatening, Hospitalization, Other)
  Sender: FDA-Public Use
  Company Number: DE-B.I. PHARMACEUTICALS,INC./RIDGEFIELD-2013-DE-00705DE

PATIENT
  Sex: Female
  Weight: 71 kg

DRUGS (6)
  1. PRADAXA [Suspect]
     Indication: ATRIAL FIBRILLATION
     Dosage: 220 MG
     Dates: start: 201210
  2. DIURETIC [Concomitant]
  3. ACE-INHIBITOR [Concomitant]
  4. CALCIUM ANTAGONIST [Concomitant]
  5. METILDIGOXIN [Concomitant]
  6. BETA BLOCKING AGENT [Concomitant]

REACTIONS (1)
  - Intracardiac thrombus [Not Recovered/Not Resolved]
